FAERS Safety Report 9370856 (Version 1)
Quarter: 2013Q2

REPORT INFORMATION
  Report Type: Spontaneous
  Country: US (occurrence: US)
  Receive Date: 20130626
  Receipt Date: 20130626
  Transmission Date: 20140414
  Serious: Yes (Hospitalization)
  Sender: FDA-Public Use
  Company Number: US-NOVOPROD-381044

PATIENT
  Sex: Male

DRUGS (2)
  1. NOVOLOG [Suspect]
     Indication: DIABETES MELLITUS
     Route: 058
  2. LANTUS [Suspect]
     Indication: DIABETES MELLITUS
     Route: 058

REACTIONS (4)
  - Hospitalisation [Unknown]
  - Diet refusal [Unknown]
  - Drug ineffective [Unknown]
  - Diabetes mellitus inadequate control [Unknown]
